FAERS Safety Report 18533952 (Version 1)
Quarter: 2020Q4

REPORT INFORMATION
  Report Type: Spontaneous
  Country: US (occurrence: US)
  Receive Date: 20201123
  Receipt Date: 20201123
  Transmission Date: 20210114
  Serious: Yes (Other)
  Sender: FDA-Public Use
  Company Number: US-BRACCO-2020US03723

PATIENT
  Sex: Male

DRUGS (3)
  1. LUMASON [Suspect]
     Active Substance: SULFUR HEXAFLUORIDE
     Indication: ECHOCARDIOGRAM
     Dosage: UNK, SINGLE
     Route: 042
     Dates: start: 20200904, end: 20200904
  2. LUMASON [Suspect]
     Active Substance: SULFUR HEXAFLUORIDE
     Indication: ECHOCARDIOGRAM
     Dosage: UNK, SINGLE
     Route: 042
     Dates: start: 20200904, end: 20200904
  3. LUMASON [Suspect]
     Active Substance: SULFUR HEXAFLUORIDE
     Indication: ECHOCARDIOGRAM
     Dosage: UNK, SINGLE
     Route: 042
     Dates: start: 20200904, end: 20200904

REACTIONS (5)
  - Retching [Unknown]
  - Electrocardiogram ST segment elevation [Recovered/Resolved]
  - Paraesthesia [Unknown]
  - Dyspnoea [Unknown]
  - Chest discomfort [Unknown]

NARRATIVE: CASE EVENT DATE: 20200904
